FAERS Safety Report 15684960 (Version 1)
Quarter: 2018Q4

REPORT INFORMATION
  Report Type: Spontaneous
  Country: US (occurrence: US)
  Receive Date: 20181204
  Receipt Date: 20181204
  Transmission Date: 20190205
  Serious: Yes (Hospitalization)
  Sender: FDA-Public Use
  Company Number: US-ANTARES PHARMA, INC.-2018-LIT-ME-0580

PATIENT
  Age: 77 Year
  Sex: Male

DRUGS (2)
  1. LEFLUNOMIDE. [Suspect]
     Active Substance: LEFLUNOMIDE
     Indication: RHEUMATOID ARTHRITIS
  2. METHOTREXATE. [Suspect]
     Active Substance: METHOTREXATE
     Indication: RHEUMATOID ARTHRITIS
     Dosage: UNK

REACTIONS (6)
  - Rales [Recovered/Resolved]
  - Tachypnoea [Recovered/Resolved]
  - Breath sounds abnormal [Recovered/Resolved]
  - Tachycardia [Recovered/Resolved]
  - Infection [Recovered/Resolved]
  - Hypoxia [Recovered/Resolved]
